FAERS Safety Report 10061577 (Version 2)
Quarter: 2014Q2

REPORT INFORMATION
  Report Type: Spontaneous
  Country: TR (occurrence: None)
  Receive Date: 20140403
  Receipt Date: 20140613
  Transmission Date: 20141212
  Serious: Yes (Hospitalization)
  Sender: FDA-Public Use
  Company Number: ABR_01552_2014

PATIENT
  Age: 37 Year
  Sex: Female

DRUGS (5)
  1. LAMOTRIGINE [Suspect]
     Indication: PRODUCT USED FOR UNKNOWN INDICATION
  2. QUETIAPINE [Suspect]
     Indication: PRODUCT USED FOR UNKNOWN INDICATION
     Dosage: (DF [TAPER DOSE]),  (DF), (DF [INCREASED])
  3. ARIPIPRAZOLE [Suspect]
     Indication: PRODUCT USED FOR UNKNOWN INDICATION
  4. LORAZEPAM [Suspect]
     Indication: PRODUCT USED FOR UNKNOWN INDICATION
     Dosage: (DF), (DF [TAPERED])
  5. SULBACTAM-AMPICILLIN [Suspect]
     Indication: PRODUCT USED FOR UNKNOWN INDICATION

REACTIONS (18)
  - Tremor [None]
  - Pyrexia [None]
  - Face oedema [None]
  - Localised oedema [None]
  - Muscle rigidity [None]
  - Bradykinesia [None]
  - Hepatomegaly [None]
  - Drug reaction with eosinophilia and systemic symptoms [None]
  - Disorientation [None]
  - Gait disturbance [None]
  - Blood sodium decreased [None]
  - Inappropriate antidiuretic hormone secretion [None]
  - Encephalitis autoimmune [None]
  - Epstein-Barr virus infection [None]
  - Epstein-Barr virus antibody positive [None]
  - Rash [None]
  - Drug reaction with eosinophilia and systemic symptoms [None]
  - Condition aggravated [None]
